FAERS Safety Report 8004199-X (Version None)
Quarter: 2011Q4

REPORT INFORMATION
  Report Type: 
  Country: None (occurrence: None)
  Receive Date: 20111223
  Receipt Date: 20111216
  Transmission Date: 20120403
  Serious: Yes (Hospitalization)
  Sender: FDA-Public Use
  Company Number: US-BIOGENIDEC-2011BI047824

PATIENT
  Age: 51 Year
  Sex: Female

DRUGS (3)
  1. BACLOFEN [Concomitant]
     Dates: start: 20010101
  2. DILAUDID [Concomitant]
     Indication: BACK PAIN
     Dates: start: 20010101
  3. AVONEX [Suspect]
     Indication: MULTIPLE SCLEROSIS
     Route: 030
     Dates: start: 20110222

REACTIONS (4)
  - SPINAL FUSION SURGERY [None]
  - BACK PAIN [None]
  - PROCEDURAL PAIN [None]
  - INFLAMMATION [None]
